FAERS Safety Report 4906182-7 (Version None)
Quarter: 2006Q1

REPORT INFORMATION
  Report Type: 
  Country: None (occurrence: None)
  Receive Date: 20060209
  Receipt Date: 20060202
  Transmission Date: 20060701
  Serious: Yes (Other)
  Sender: FDA-Public Use
  Company Number: US-BRISTOL-MYERS SQUIBB COMPANY-13270277

PATIENT
  Age: 65 Year
  Sex: Male
  Weight: 68 kg

DRUGS (6)
  1. ERBITUX [Suspect]
     Route: 042
     Dates: start: 20060131, end: 20060131
  2. ALOXI [Concomitant]
     Indication: PREMEDICATION
     Route: 042
     Dates: start: 20060131
  3. BENADRYL [Concomitant]
     Indication: PREMEDICATION
     Route: 042
     Dates: start: 20060131
  4. DECADRON SRC [Concomitant]
     Indication: PREMEDICATION
     Route: 042
     Dates: start: 20060131
  5. PERCOCET [Concomitant]
  6. RADIATION THERAPY [Concomitant]
     Dates: start: 20060131

REACTIONS (3)
  - ERYTHEMA [None]
  - FACE OEDEMA [None]
  - MUCOSAL INFLAMMATION [None]
